FAERS Safety Report 4791488-5 (Version None)
Quarter: 2005Q4

REPORT INFORMATION
  Report Type: 
  Country: None (occurrence: None)
  Receive Date: 20051007
  Receipt Date: 20041019
  Transmission Date: 20060501
  Serious: No
  Sender: FDA-Public Use
  Company Number: US-BRISTOL-MYERS SQUIBB COMPANY-12738373

PATIENT
  Sex: Female
  Weight: 63 kg

DRUGS (2)
  1. AVAPRO [Suspect]
     Indication: HYPERTENSION
     Route: 048
     Dates: start: 20040501
  2. ATENOLOL [Concomitant]

REACTIONS (2)
  - BONE PAIN [None]
  - MYALGIA [None]
